FAERS Safety Report 6634295-0 (Version None)
Quarter: 2010Q1

REPORT INFORMATION
  Report Type: 
  Country: None (occurrence: None)
  Receive Date: 20100312
  Receipt Date: 20100312
  Transmission Date: 20100710
  Serious: Yes (Other)
  Sender: FDA-Public Use
  Company Number: None

PATIENT
  Sex: Female
  Weight: 80.7403 kg

DRUGS (5)
  1. ACTONEL [Suspect]
     Indication: OSTEOPOROSIS
     Dosage: 35 MG ONCE WEEKLY P.O.
     Route: 048
     Dates: start: 20091014, end: 20091215
  2. LIPITOR [Concomitant]
  3. D3 [Concomitant]
  4. CALCIUM CITRATE [Concomitant]
  5. LAVASA [Concomitant]

REACTIONS (7)
  - ARTHRALGIA [None]
  - BONE PAIN [None]
  - CHILLS [None]
  - HEADACHE [None]
  - ODYNOPHAGIA [None]
  - PYREXIA [None]
  - TREMOR [None]
